FAERS Safety Report 4801200-9 (Version None)
Quarter: 2005Q4

REPORT INFORMATION
  Report Type: 
  Country: None (occurrence: None)
  Receive Date: 20051011
  Receipt Date: 20050928
  Transmission Date: 20060501
  Serious: Yes (Other)
  Sender: FDA-Public Use
  Company Number: 12332

PATIENT
  Age: 69 Year
  Sex: Female
  Weight: 61.5 kg

DRUGS (1)
  1. PACLITAXEL [Suspect]
     Indication: PERITONEAL CARCINOMA
     Dosage: 280 MG IV
     Route: 042
     Dates: start: 20050913, end: 20050913

REACTIONS (6)
  - ABDOMINAL RIGIDITY [None]
  - CARDIOVASCULAR DISORDER [None]
  - DIZZINESS [None]
  - NAUSEA [None]
  - RENAL PAIN [None]
  - SKIN REACTION [None]
